FAERS Safety Report 7539239-5 (Version None)
Quarter: 2011Q2

REPORT INFORMATION
  Report Type: 
  Country: None (occurrence: None)
  Receive Date: 20110610
  Receipt Date: 20110530
  Transmission Date: 20111010
  Serious: Yes (Hospitalization)
  Sender: FDA-Public Use
  Company Number: AU-JNJFOC-20110405016

PATIENT
  Sex: Male
  Weight: 84.1 kg

DRUGS (27)
  1. FELODIPINE [Concomitant]
     Indication: HYPERTENSION
     Route: 048
     Dates: start: 20021001
  2. HERRON IRON COMPLEX [Concomitant]
     Indication: FATIGUE
     Route: 048
     Dates: start: 20110401, end: 20110410
  3. CHOLECALCIFEROL [Concomitant]
     Indication: VITAMIN D DEFICIENCY
     Route: 048
     Dates: start: 20110201
  4. SODIUM CHLORIDE [Concomitant]
     Indication: RENAL IMPAIRMENT
     Route: 042
     Dates: start: 20110410, end: 20110420
  5. ACETAMINOPHEN [Concomitant]
     Route: 048
     Dates: start: 20110415, end: 20110415
  6. FENTANYL [Concomitant]
     Indication: ANALGESIC THERAPY
     Route: 065
     Dates: start: 20110419, end: 20110419
  7. LEUPROLIDE ACETATE [Concomitant]
     Indication: PROSTATE CANCER
     Route: 030
     Dates: start: 20081022
  8. FOSINOPRIL SODIUM AND HYDROCHLOROTHIAZIDE [Concomitant]
     Dosage: 20/12.5 MG
     Route: 048
     Dates: start: 20090729, end: 20110409
  9. LEUPROLIDE ACETATE [Concomitant]
     Indication: HORMONE THERAPY
     Route: 065
     Dates: start: 20040101
  10. SODIUM CITROTARTRATE [Concomitant]
     Indication: PROPHYLAXIS
     Route: 048
     Dates: start: 20110415, end: 20110415
  11. IRON TABLETS [Concomitant]
     Indication: FATIGUE
     Route: 048
     Dates: start: 20110412, end: 20110413
  12. ABIRATERONE ACETATE [Suspect]
     Dosage: OPEN LABEL
     Route: 048
     Dates: start: 20110513
  13. HARTMANN'S SOLUTION [Concomitant]
     Indication: RENAL IMPAIRMENT
     Route: 042
     Dates: start: 20110411, end: 20110420
  14. TRANEXAMIC ACID [Concomitant]
     Indication: HAEMATURIA
     Route: 048
     Dates: start: 20110422
  15. TRANEXAMIC ACID [Concomitant]
     Route: 048
     Dates: start: 20110411, end: 20110415
  16. BUPIVACAINE HCL [Concomitant]
     Indication: SPINAL ANAESTHESIA
     Route: 008
     Dates: start: 20110419, end: 20110419
  17. BUPIVACAINE HCL [Concomitant]
     Route: 008
     Dates: start: 20110419, end: 20110419
  18. ABIRATERONE ACETATE [Suspect]
     Route: 048
     Dates: start: 20081022
  19. PREDNISONE [Suspect]
     Indication: PROSTATE CANCER METASTATIC
     Route: 048
     Dates: start: 20081021
  20. HERRON IRON COMPLEX [Concomitant]
     Route: 048
     Dates: start: 20100830, end: 20110401
  21. MIDAZOLAM [Concomitant]
     Indication: SEDATION
     Route: 065
     Dates: start: 20110419, end: 20110419
  22. ABIRATERONE ACETATE [Suspect]
     Indication: PROSTATE CANCER METASTATIC
     Dosage: OPEN LABEL
     Route: 048
     Dates: start: 20101214, end: 20110505
  23. PREDNISONE [Suspect]
     Route: 048
     Dates: start: 20101214
  24. FOSINOPRIL SODIUM AND HYDROCHLOROTHIAZIDE [Concomitant]
     Indication: HYPERTENSION
     Dosage: 20/12.5 MG
     Route: 048
     Dates: start: 20110422
  25. NYSTATIN [Concomitant]
     Indication: ORAL CANDIDIASIS
     Dosage: AS NEEDED
     Route: 048
     Dates: start: 20101001
  26. POTASSIUM CHLORIDE [Concomitant]
     Indication: HYPOKALAEMIA
     Route: 048
     Dates: start: 20100209
  27. LIGNOCAINE WITH CHLORHEXIDINE [Concomitant]
     Indication: ANAESTHESIA
     Route: 061
     Dates: start: 20110419, end: 20110419

REACTIONS (2)
  - URINARY RETENTION [None]
  - HAEMATURIA [None]
